FAERS Safety Report 11790991 (Version 1)
Quarter: 2015Q4

REPORT INFORMATION
  Report Type: Spontaneous
  Country: US (occurrence: US)
  Receive Date: 20151201
  Receipt Date: 20151201
  Transmission Date: 20160305
  Serious: No
  Sender: FDA-Public Use
  Company Number: US-APOTEX-2015AP009759

PATIENT

DRUGS (1)
  1. CAPTOPRIL. [Suspect]
     Active Substance: CAPTOPRIL
     Indication: PRODUCT USED FOR UNKNOWN INDICATION
     Dosage: 6.25 MG THRICE A DAY; RECEIVED 12.5 MG AND DOCUMENTED AS 6.25 MG
     Route: 048

REACTIONS (2)
  - Incorrect dose administered [Unknown]
  - Blood pressure decreased [Unknown]
